FAERS Safety Report 4583385-5 (Version None)
Quarter: 2005Q1

REPORT INFORMATION
  Report Type: 
  Country: None (occurrence: None)
  Receive Date: 20050125
  Receipt Date: 20041027
  Transmission Date: 20050727
  Serious: No
  Sender: FDA-Public Use
  Company Number: USA041080447

PATIENT
  Age: 65 Year
  Sex: Female
  Weight: 69 kg

DRUGS (3)
  1. FORTEO [Suspect]
     Indication: OSTEOPOROSIS
     Dosage: 20 UG/1 DAY
     Dates: start: 20040924
  2. CALCIUM PLUS D [Concomitant]
  3. VITAMIN B-12 [Concomitant]

REACTIONS (8)
  - CONSTIPATION [None]
  - INJECTION SITE ERYTHEMA [None]
  - INJECTION SITE PAIN [None]
  - INJECTION SITE REACTION [None]
  - MEDICATION ERROR [None]
  - OVERDOSE [None]
  - PAIN [None]
  - PALPITATIONS [None]
